FAERS Safety Report 7271023-2 (Version None)
Quarter: 2011Q1

REPORT INFORMATION
  Report Type: 
  Country: None (occurrence: None)
  Receive Date: 20110202
  Receipt Date: 20110126
  Transmission Date: 20110831
  Serious: Yes (Life-Threatening, Other)
  Sender: FDA-Public Use
  Company Number: JP-ASTRAZENECA-2004AP03734

PATIENT
  Age: 62 Year
  Sex: Male
  Weight: 71 kg

DRUGS (22)
  1. XYLOCAINE [Suspect]
     Indication: LOCAL ANAESTHESIA
  2. DIPRIVAN [Concomitant]
  3. VECURONIUM BROMIDE [Concomitant]
  4. OXYGEN [Concomitant]
     Indication: SEDATION
     Route: 055
  5. DIPRIVAN [Concomitant]
     Indication: MAINTENANCE OF ANAESTHESIA
  6. DIPRIVAN [Concomitant]
  7. XYLOCAINE [Suspect]
     Route: 053
  8. DIPRIVAN [Concomitant]
  9. FENTANYL CITRATE [Concomitant]
  10. ATROPINE [Concomitant]
  11. DIPRIVAN [Concomitant]
  12. FENTANYL CITRATE [Concomitant]
     Indication: SEDATION
  13. FENTANYL CITRATE [Concomitant]
  14. FENTANYL CITRATE [Concomitant]
  15. NEOSTIGMINE [Concomitant]
  16. MIDAZOLAM [Concomitant]
     Indication: SEDATION
  17. FENTANYL CITRATE [Concomitant]
     Indication: MAINTENANCE OF ANAESTHESIA
  18. FENTANYL CITRATE [Concomitant]
  19. MARCAINE [Suspect]
     Indication: LOCAL ANAESTHESIA
     Route: 053
  20. MARCAINE [Suspect]
     Route: 008
  21. DIPRIVAN [Concomitant]
     Indication: SEDATION
  22. XYLOCAINE [Suspect]

REACTIONS (6)
  - LOSS OF CONSCIOUSNESS [None]
  - DIPLOPIA [None]
  - UNRESPONSIVE TO STIMULI [None]
  - APNOEA [None]
  - PUPIL FIXED [None]
  - NYSTAGMUS [None]
